FAERS Safety Report 6318160-4 (Version None)
Quarter: 2009Q3

REPORT INFORMATION
  Report Type: 
  Country: None (occurrence: None)
  Receive Date: 20090821
  Receipt Date: 20090817
  Transmission Date: 20100115
  Serious: Yes (Hospitalization)
  Sender: FDA-Public Use
  Company Number: A0802528A

PATIENT
  Age: 87 Year
  Sex: Male

DRUGS (10)
  1. ARIXTRA [Suspect]
     Dosage: 7.5MG PER DAY
     Route: 058
  2. AZILECT [Concomitant]
  3. OTHER MEDICATIONS [Concomitant]
  4. TIMOLOL [Concomitant]
  5. BRIMONIDINE [Concomitant]
  6. SINEMET [Concomitant]
  7. MEGACE [Concomitant]
  8. FUROSEMIDE [Concomitant]
  9. PROTONIX [Concomitant]
  10. ADVAIR HFA [Concomitant]

REACTIONS (3)
  - CONFUSIONAL STATE [None]
  - EPISTAXIS [None]
  - MEMORY IMPAIRMENT [None]
